FAERS Safety Report 4365757-7 (Version None)
Quarter: 2004Q2

REPORT INFORMATION
  Report Type: 
  Country: None (occurrence: None)
  Receive Date: 20040520
  Receipt Date: 20040511
  Transmission Date: 20050107
  Serious: Yes (Life-Threatening)
  Sender: FDA-Public Use
  Company Number: 2004EU000976

PATIENT
  Age: 24 Year
  Sex: Female

DRUGS (1)
  1. FK506 (TACROLIMUS) CAPSULE [Suspect]
     Dosage: 3.00 MG, UNKNOWN/D, ORAL
     Route: 048
     Dates: start: 20031113, end: 20040215

REACTIONS (1)
  - ARTERIAL THROMBOSIS [None]
